FAERS Safety Report 19378771 (Version 1)
Quarter: 2021Q2

REPORT INFORMATION
  Report Type: Spontaneous
  Country: US (occurrence: US)
  Receive Date: 20210606
  Receipt Date: 20210606
  Transmission Date: 20210717
  Serious: No
  Sender: FDA-Public Use
  Company Number: US-SUN PHARMACEUTICAL INDUSTRIES LTD-2021R1-290277

PATIENT
  Age: 55 Year
  Sex: Female

DRUGS (1)
  1. CEQUA [Suspect]
     Active Substance: CYCLOSPORINE
     Indication: PRODUCT USED FOR UNKNOWN INDICATION
     Dosage: 1 DROP, BID (EACH EYE)
     Route: 047
     Dates: start: 20210325

REACTIONS (2)
  - Eye irritation [Unknown]
  - Asthenopia [Unknown]

NARRATIVE: CASE EVENT DATE: 20210325
